FAERS Safety Report 20574305 (Version 3)
Quarter: 2022Q2

REPORT INFORMATION
  Report Type: Spontaneous
  Country: JP (occurrence: JP)
  Receive Date: 20220309
  Receipt Date: 20220617
  Transmission Date: 20220721
  Serious: Yes (Other)
  Sender: FDA-Public Use
  Company Number: JP-Eisai-202112580_LEN-TMC_P_1

PATIENT

DRUGS (1)
  1. LENVIMA [Suspect]
     Active Substance: LENVATINIB
     Indication: Malignant neoplasm of thymus
     Route: 048
     Dates: start: 20211124, end: 20220303

REACTIONS (3)
  - Cardiac failure congestive [Recovered/Resolved]
  - Hypertension [Recovered/Resolved]
  - Platelet count decreased [Recovered/Resolved]

NARRATIVE: CASE EVENT DATE: 20220303
